FAERS Safety Report 13403266 (Version 1)
Quarter: 2017Q2

REPORT INFORMATION
  Report Type: Spontaneous
  Country: US (occurrence: US)
  Receive Date: 20170404
  Receipt Date: 20170404
  Transmission Date: 20170830
  Serious: Yes (Hospitalization, Other)
  Sender: FDA-Public Use
  Company Number: US-ROCHE-1875187

PATIENT
  Sex: Female

DRUGS (4)
  1. 5-FU [Suspect]
     Active Substance: FLUOROURACIL
     Indication: COLON CANCER METASTATIC
     Route: 065
  2. OXALIPLATIN. [Suspect]
     Active Substance: OXALIPLATIN
     Indication: PRODUCT USED FOR UNKNOWN INDICATION
     Route: 065
  3. CAMPTOSAR [Concomitant]
     Active Substance: IRINOTECAN HYDROCHLORIDE
  4. AVASTIN [Suspect]
     Active Substance: BEVACIZUMAB
     Indication: COLON CANCER METASTATIC
     Route: 065

REACTIONS (16)
  - Diarrhoea [Unknown]
  - Nausea [Unknown]
  - Dry eye [Unknown]
  - Dehydration [Unknown]
  - Abdominal pain upper [Unknown]
  - Dysstasia [Unknown]
  - Throat irritation [Unknown]
  - Stomatitis [Unknown]
  - Vomiting [Unknown]
  - Fatigue [Unknown]
  - Decreased appetite [Unknown]
  - Rhinorrhoea [Unknown]
  - Gastric dilatation [Unknown]
  - Anaphylactic reaction [Unknown]
  - Asthenia [Unknown]
  - Gastric disorder [Unknown]
